FAERS Safety Report 15995672 (Version 1)
Quarter: 2019Q1

REPORT INFORMATION
  Report Type: Spontaneous
  Country: FR (occurrence: FR)
  Receive Date: 20190222
  Receipt Date: 20190222
  Transmission Date: 20190418
  Serious: Yes (Other)
  Sender: FDA-Public Use
  Company Number: FR-AMREGENT-20190294

PATIENT
  Age: 27 Year
  Sex: Female
  Weight: 52 kg

DRUGS (2)
  1. FERINJECT [Suspect]
     Active Substance: FERRIC CARBOXYMALTOSE
     Dosage: UNKNOWN
     Route: 042
     Dates: start: 20190103, end: 20190117
  2. TARDYFERON [Concomitant]
     Active Substance: FERROUS SULFATE
     Dosage: UNKNOWN
     Route: 065

REACTIONS (1)
  - Thrombocytopenia [Unknown]

NARRATIVE: CASE EVENT DATE: 20190117
